FAERS Safety Report 17762024 (Version 2)
Quarter: 2021Q1

REPORT INFORMATION
  Report Type: Spontaneous
  Country: US (occurrence: US)
  Receive Date: 20200508
  Receipt Date: 20210312
  Transmission Date: 20210419
  Serious: Yes (Other)
  Sender: FDA-Public Use
  Company Number: US-PURDUE PHARMA-USA-2020-0152513

PATIENT

DRUGS (4)
  1. METHADONE [Suspect]
     Active Substance: METHADONE HYDROCHLORIDE
     Indication: PAIN MANAGEMENT
     Dosage: 10 MG, 720 PILLS A MONTH
     Route: 065
     Dates: start: 2008
  2. OXYCONTIN [Suspect]
     Active Substance: OXYCODONE HYDROCHLORIDE
     Indication: PAIN MANAGEMENT
     Dosage: 30 MG, 500 PILLS A MONTH
     Route: 048
     Dates: start: 2008
  3. VALIUM [Suspect]
     Active Substance: DIAZEPAM
     Indication: PAIN MANAGEMENT
     Dosage: 10 MG, QID
     Route: 065
     Dates: start: 2008
  4. SOMA [Suspect]
     Active Substance: CARISOPRODOL
     Indication: PAIN MANAGEMENT
     Dosage: 350 MG, QID
     Route: 065
     Dates: start: 2008

REACTIONS (11)
  - Loss of consciousness [Unknown]
  - Gastric cancer [Unknown]
  - Tobacco user [Unknown]
  - Multiple fractures [Unknown]
  - Internal injury [Unknown]
  - Limb injury [Unknown]
  - Post-traumatic stress disorder [Unknown]
  - Road traffic accident [Unknown]
  - Lung neoplasm malignant [Unknown]
  - Visual impairment [Unknown]
  - Product prescribing issue [Unknown]

NARRATIVE: CASE EVENT DATE: 2009
